FAERS Safety Report 7443155-7 (Version None)
Quarter: 2011Q2

REPORT INFORMATION
  Report Type: 
  Country: None (occurrence: None)
  Receive Date: 20110428
  Receipt Date: 20110419
  Transmission Date: 20111010
  Serious: Yes (Hospitalization)
  Sender: FDA-Public Use
  Company Number: A0921140A

PATIENT
  Age: 85 Year
  Sex: Female
  Weight: 52.5 kg

DRUGS (2)
  1. PREDNISONE [Suspect]
     Route: 048
     Dates: start: 20101014, end: 20110315
  2. MELPHALAN [Suspect]
     Dosage: 12MG SEE DOSAGE TEXT
     Route: 048
     Dates: start: 20101014, end: 20110315

REACTIONS (1)
  - BACK PAIN [None]
